FAERS Safety Report 6830265-8 (Version None)
Quarter: 2010Q3

REPORT INFORMATION
  Report Type: 
  Country: None (occurrence: None)
  Receive Date: 20100712
  Receipt Date: 20100701
  Transmission Date: 20110219
  Serious: Yes (Hospitalization)
  Sender: FDA-Public Use
  Company Number: US-BIOGENIDEC-2010BI020812

PATIENT
  Age: 47 Year
  Sex: Female

DRUGS (6)
  1. TYSABRI [Suspect]
     Indication: MULTIPLE SCLEROSIS
     Route: 042
     Dates: start: 20080722, end: 20090320
  2. TYSABRI [Suspect]
     Route: 042
     Dates: start: 20090601, end: 20100415
  3. TIZANIDINE HCL [Concomitant]
  4. LEXAPRO [Concomitant]
  5. ALLEGRA [Concomitant]
  6. NEURONTIN [Concomitant]

REACTIONS (1)
  - CONVULSION [None]
